FAERS Safety Report 4856052-8 (Version None)
Quarter: 2005Q4

REPORT INFORMATION
  Report Type: 
  Country: None (occurrence: None)
  Receive Date: 20051216
  Receipt Date: 20051212
  Transmission Date: 20060501
  Serious: Yes (Hospitalization)
  Sender: FDA-Public Use
  Company Number: FI-AVENTIS-200520922GDDC

PATIENT
  Sex: Female
  Weight: 121 kg

DRUGS (5)
  1. LANTUS [Suspect]
     Indication: DIABETES MELLITUS NON-INSULIN-DEPENDENT
     Route: 058
     Dates: start: 20051122, end: 20051124
  2. LANTUS [Suspect]
     Route: 058
     Dates: start: 20051125, end: 20051128
  3. HUMALOG [Concomitant]
     Indication: DIABETES MELLITUS NON-INSULIN-DEPENDENT
     Dosage: DOSE: 3-16
     Route: 058
  4. ATACAND [Concomitant]
     Indication: HYPERTONIA
     Route: 048
     Dates: start: 20051122
  5. CORTISONE SPRAY [Concomitant]

REACTIONS (3)
  - BLOOD GLUCOSE INCREASED [None]
  - HEADACHE [None]
  - NAUSEA [None]
